FAERS Safety Report 12452681 (Version 1)
Quarter: 2016Q2

REPORT INFORMATION
  Report Type: Report from Study
  Country: US (occurrence: US)
  Receive Date: 20160609
  Receipt Date: 20160609
  Transmission Date: 20160815
  Serious: Yes (Death, Hospitalization)
  Sender: FDA-Public Use
  Company Number: US-BAYER-2016-089444

PATIENT
  Age: 36 Year
  Sex: Female
  Weight: 64.4 kg

DRUGS (4)
  1. ADEMPAS [Suspect]
     Active Substance: RIOCIGUAT
     Indication: PULMONARY ARTERIAL HYPERTENSION
     Dosage: 0.5 MG, TID
     Route: 048
     Dates: start: 20160422
  2. ADEMPAS [Suspect]
     Active Substance: RIOCIGUAT
     Indication: PULMONARY ARTERIAL HYPERTENSION
     Dosage: 1 MG, TID
     Route: 048
  3. ADEMPAS [Suspect]
     Active Substance: RIOCIGUAT
     Indication: PULMONARY ARTERIAL HYPERTENSION
     Dosage: 0.5 MG, TID
     Route: 048
     Dates: start: 20160517
  4. DEFERASIROX [Concomitant]
     Active Substance: DEFERASIROX
     Dosage: UNK

REACTIONS (10)
  - Sickle cell anaemia [None]
  - Hospitalisation [None]
  - Myocardial infarction [Fatal]
  - Nausea [None]
  - Rash [None]
  - Dizziness [None]
  - Dyspnoea [None]
  - Decreased appetite [None]
  - Muscular weakness [None]
  - Swelling [None]

NARRATIVE: CASE EVENT DATE: 20160520
